FAERS Safety Report 25249071 (Version 1)
Quarter: 2025Q2

REPORT INFORMATION
  Report Type: Spontaneous
  Country: US (occurrence: US)
  Receive Date: 20250429
  Receipt Date: 20250429
  Transmission Date: 20250717
  Serious: Yes (Hospitalization, Other)
  Sender: STRIDES
  Company Number: US-STRIDES ARCOLAB LIMITED-2025SP005110

PATIENT
  Age: 30 Year
  Sex: Male

DRUGS (1)
  1. PREDNISOLONE [Suspect]
     Active Substance: PREDNISOLONE
     Indication: Hepatitis alcoholic
     Route: 065

REACTIONS (4)
  - Necrotising oesophagitis [Unknown]
  - Upper gastrointestinal haemorrhage [Unknown]
  - Candida infection [Unknown]
  - Off label use [Unknown]
